FAERS Safety Report 17584475 (Version 4)
Quarter: 2020Q2

REPORT INFORMATION
  Report Type: Spontaneous
  Country: GB (occurrence: GB)
  Receive Date: 20200326
  Receipt Date: 20200518
  Transmission Date: 20200713
  Serious: Yes (Hospitalization, Other)
  Sender: FDA-Public Use
  Company Number: GB-TEVA-2020-GB-1214983

PATIENT
  Age: 1 Year
  Sex: Male

DRUGS (1)
  1. XAGGITIN 27 MG [Suspect]
     Active Substance: METHYLPHENIDATE HYDROCHLORIDE
     Indication: ACCIDENTAL EXPOSURE TO PRODUCT BY CHILD
     Route: 048

REACTIONS (10)
  - Failure of child resistant product closure [Recovered/Resolved]
  - Blood creatine phosphokinase increased [Recovered/Resolved]
  - Tachycardia [Recovered/Resolved]
  - Product quality issue [Recovered/Resolved]
  - Pyrexia [Recovered/Resolved]
  - Accidental exposure to product [Recovered/Resolved]
  - Acidosis [Recovered/Resolved]
  - Accidental overdose [Recovered/Resolved]
  - Rhabdomyolysis [Recovered/Resolved]
  - Agitation [Recovered/Resolved]

NARRATIVE: CASE EVENT DATE: 20190803
